FAERS Safety Report 24989509 (Version 1)
Quarter: 2025Q1

REPORT INFORMATION
  Report Type: Spontaneous
  Country: CN (occurrence: CN)
  Receive Date: 20250220
  Receipt Date: 20250220
  Transmission Date: 20250409
  Serious: Yes (Hospitalization, Other)
  Sender: ALEXION PHARMACEUTICALS
  Company Number: CN-ASTRAZENECA-202502CHN010652CN

PATIENT
  Age: 76 Year
  Weight: 51 kg

DRUGS (6)
  1. IMFINZI [Suspect]
     Active Substance: DURVALUMAB
     Indication: Nasopharyngeal cancer
     Dosage: 100 MILLIGRAM, QD
  2. ETOPOSIDE [Suspect]
     Active Substance: ETOPOSIDE
     Indication: Nasopharyngeal cancer
     Dosage: 100 MILLIGRAM, QD
  3. LOBAPLATIN [Suspect]
     Active Substance: LOBAPLATIN
     Indication: Nasopharyngeal cancer
     Dosage: 45 MILLIGRAM, QD
  4. SODIUM CHLORIDE [Concomitant]
     Active Substance: SODIUM CHLORIDE
     Indication: Product used for unknown indication
     Dosage: 100 MILLILITER, QD
  5. SODIUM CHLORIDE [Concomitant]
     Active Substance: SODIUM CHLORIDE
     Dosage: 500 MILLILITER, QD
  6. DEXTROSE [Concomitant]
     Active Substance: DEXTROSE MONOHYDRATE
     Indication: Product used for unknown indication
     Dosage: 500 MILLILITER, QD

REACTIONS (2)
  - White blood cell count decreased [Recovering/Resolving]
  - Platelet count decreased [Recovering/Resolving]
